FAERS Safety Report 19308350 (Version 2)
Quarter: 2021Q2

REPORT INFORMATION
  Report Type: Report from Study
  Country: US (occurrence: US)
  Receive Date: 20210525
  Receipt Date: 20210617
  Transmission Date: 20210717
  Serious: Yes (Hospitalization)
  Sender: FDA-Public Use
  Company Number: US-EISAI MEDICAL RESEARCH-EC-2021-091955

PATIENT
  Age: 63 Year
  Sex: Female
  Weight: 84 kg

DRUGS (11)
  1. LENVIMA [Suspect]
     Active Substance: LENVATINIB
     Indication: ENDOMETRIAL CANCER
     Route: 048
     Dates: start: 20210416, end: 202105
  2. LEVOTHYROXINE. [Concomitant]
     Active Substance: LEVOTHYROXINE
  3. ZINC. [Concomitant]
     Active Substance: ZINC
  4. POTASSIUM [Concomitant]
     Active Substance: POTASSIUM
     Dosage: 595 (99)MG
  5. LENVIMA [Suspect]
     Active Substance: LENVATINIB
     Route: 048
     Dates: start: 20210514
  6. VITAMIN C [Concomitant]
     Active Substance: ASCORBIC ACID
  7. CITALOPRAM [Concomitant]
     Active Substance: CITALOPRAM HYDROBROMIDE
  8. CALCIUM + D3 [Concomitant]
     Active Substance: CALCIUM\CHOLECALCIFEROL
     Dosage: 600MG? 12.5 TABLET ER
  9. IBUPROFEN. [Concomitant]
     Active Substance: IBUPROFEN
     Dosage: 100% POWDER
  10. CENTRUM [Concomitant]
     Active Substance: VITAMINS
     Dosage: 9MG/15 ML LIQUID
  11. MAGNESIUM [Concomitant]
     Active Substance: MAGNESIUM

REACTIONS (5)
  - Hypotension [Unknown]
  - Dysphonia [Unknown]
  - Diarrhoea [Not Recovered/Not Resolved]
  - Oral pain [Not Recovered/Not Resolved]
  - Dehydration [Unknown]

NARRATIVE: CASE EVENT DATE: 2021
